FAERS Safety Report 9854336 (Version 4)
Quarter: 2014Q1

REPORT INFORMATION
  Report Type: Spontaneous
  Country: AU (occurrence: AU)
  Receive Date: 20140130
  Receipt Date: 20140326
  Transmission Date: 20141002
  Serious: Yes (Hospitalization)
  Sender: FDA-Public Use
  Company Number: AU-BIOGENIDEC-2014BI009174

PATIENT
  Age: 41 Year
  Sex: Male

DRUGS (5)
  1. TECFIDERA [Suspect]
     Indication: MULTIPLE SCLEROSIS
     Route: 048
     Dates: start: 20140110
  2. TECFIDERA [Suspect]
     Indication: MULTIPLE SCLEROSIS
     Route: 048
     Dates: start: 20140117, end: 20140122
  3. MOTILIUM [Concomitant]
  4. LOMOTIL [Concomitant]
  5. SOMAC [Concomitant]
     Indication: NAUSEA

REACTIONS (6)
  - Abdominal pain [Recovered/Resolved]
  - Adverse drug reaction [Unknown]
  - Gastroenteritis [Unknown]
  - Flushing [Recovered/Resolved]
  - Nausea [Unknown]
  - Diarrhoea [Unknown]
